FAERS Safety Report 8108185-0 (Version None)
Quarter: 2012Q1

REPORT INFORMATION
  Report Type: 
  Country: None (occurrence: None)
  Receive Date: 20120202
  Receipt Date: 20120124
  Transmission Date: 20120608
  Serious: Yes (Other)
  Sender: FDA-Public Use
  Company Number: US-JNJFOC-20111204537

PATIENT
  Sex: Male
  Weight: 131.54 kg

DRUGS (8)
  1. WARFARIN SODIUM [Concomitant]
     Route: 048
     Dates: end: 20111207
  2. PANTOPRAZOLE [Concomitant]
     Route: 048
  3. DIOVAN [Concomitant]
     Indication: BLOOD PRESSURE
     Route: 048
  4. LIPITOR [Concomitant]
     Indication: BLOOD CHOLESTEROL
     Route: 048
  5. DILTIAZEM HCL [Concomitant]
     Indication: BLOOD PRESSURE
     Route: 048
  6. XARELTO [Suspect]
     Indication: ATRIAL FIBRILLATION
     Route: 048
     Dates: start: 20111204
  7. SYNTHROID [Concomitant]
     Indication: THYROID DISORDER
     Route: 048
  8. SINGULAIR [Concomitant]
     Indication: MULTIPLE ALLERGIES

REACTIONS (2)
  - DYSPNOEA [None]
  - DRUG PRESCRIBING ERROR [None]
